FAERS Safety Report 7658384-7 (Version None)
Quarter: 2011Q3

REPORT INFORMATION
  Report Type: 
  Country: None (occurrence: None)
  Receive Date: 20110802
  Receipt Date: 20110719
  Transmission Date: 20111222
  Serious: Yes (Disabling)
  Sender: FDA-Public Use
  Company Number: TUK2011A00096

PATIENT
  Age: 59 Year
  Sex: Male

DRUGS (6)
  1. ACTOS [Suspect]
     Indication: PRODUCT USED FOR UNKNOWN INDICATION
     Dates: start: 20110711
  2. DOXAZOSIN MESYLATE [Concomitant]
  3. LISINOPRIL [Concomitant]
  4. CODEINE PHOSPHATE AND ACETAMINOPHEN [Concomitant]
  5. LERCANIDIPINE [Concomitant]
  6. GLICLAZIDE (GLICLAZIDE) [Concomitant]

REACTIONS (16)
  - ERECTILE DYSFUNCTION [None]
  - FATIGUE [None]
  - AGORAPHOBIA [None]
  - DIARRHOEA [None]
  - DIZZINESS [None]
  - HYPOAESTHESIA [None]
  - PSYCHIATRIC SYMPTOM [None]
  - BACK PAIN [None]
  - DYSPNOEA [None]
  - HYPERHIDROSIS [None]
  - HEADACHE [None]
  - FLATULENCE [None]
  - ALBUMIN URINE PRESENT [None]
  - VISION BLURRED [None]
  - INSOMNIA [None]
  - APATHY [None]
